FAERS Safety Report 9871988 (Version 1)
Quarter: 2014Q1

REPORT INFORMATION
  Report Type: Spontaneous
  Country: US (occurrence: US)
  Receive Date: 20140205
  Receipt Date: 20140205
  Transmission Date: 20141002
  Serious: No
  Sender: FDA-Public Use
  Company Number: US-ALLERGAN-1304748US

PATIENT
  Age: 10 Year
  Sex: Male
  Weight: 34.47 kg

DRUGS (2)
  1. BOTOX [Suspect]
     Indication: SPASTIC DIPLEGIA
     Dosage: 50 UNITS, SINGLE
     Route: 030
     Dates: start: 20130329, end: 20130329
  2. BOTOX [Suspect]
     Dosage: UNK, SINGLE
     Route: 030
     Dates: start: 20121227, end: 20121227

REACTIONS (1)
  - Alopecia [Recovering/Resolving]
